FAERS Safety Report 9199972 (Version 2)
Quarter: 2013Q2

REPORT INFORMATION
  Report Type: Report from Study
  Country: US (occurrence: US)
  Receive Date: 20130329
  Receipt Date: 20130523
  Transmission Date: 20140414
  Serious: Yes (Other)
  Sender: FDA-Public Use
  Company Number: US-US-EMD SERONO, INC.-7201560

PATIENT
  Sex: Female

DRUGS (1)
  1. REBIF [Suspect]
     Indication: RELAPSING-REMITTING MULTIPLE SCLEROSIS
     Route: 058
     Dates: start: 20030214

REACTIONS (6)
  - Uterine leiomyoma [Unknown]
  - Endometriosis [Unknown]
  - Carpal tunnel syndrome [Recovering/Resolving]
  - Amnesia [Unknown]
  - Skin reaction [Recovering/Resolving]
  - Rash [Recovering/Resolving]
